FAERS Safety Report 11170619 (Version 3)
Quarter: 2015Q4

REPORT INFORMATION
  Report Type: Spontaneous
  Country: JP (occurrence: JP)
  Receive Date: 20150608
  Receipt Date: 20151015
  Transmission Date: 20160304
  Serious: Yes (Hospitalization, Other)
  Sender: FDA-Public Use
  Company Number: JP-JNJFOC-20150604217

PATIENT
  Age: 44 Year
  Sex: Female
  Weight: 50 kg

DRUGS (1)
  1. ORTHO M-21 [Suspect]
     Active Substance: ETHINYL ESTRADIOL\NORETHINDRONE
     Indication: ENDOMETRIOSIS
     Route: 048
     Dates: start: 20110729

REACTIONS (3)
  - Product use issue [Unknown]
  - Retroperitoneal haematoma [Recovering/Resolving]
  - Intracranial venous sinus thrombosis [Recovering/Resolving]

NARRATIVE: CASE EVENT DATE: 20140503
